FAERS Safety Report 9405176 (Version 1)
Quarter: 2013Q3

REPORT INFORMATION
  Report Type: Spontaneous
  Country: GB (occurrence: GB)
  Receive Date: 20130717
  Receipt Date: 20130717
  Transmission Date: 20140515
  Serious: Yes (Other)
  Sender: FDA-Public Use
  Company Number: GB-PFIZER INC-2013205895

PATIENT
  Age: 36 Year
  Sex: Male

DRUGS (6)
  1. PHENYTOIN [Suspect]
     Dosage: UNK
  2. KEPPRA [Suspect]
     Dosage: UNK
  3. VALPROATE SODIUM [Concomitant]
     Dosage: 1 G, 2X/DAY
  4. VALPROATE SODIUM [Concomitant]
     Dosage: UNSPECIFIED INCREASED DOSE
  5. CLOBAZAM [Concomitant]
     Dosage: 10 MG, 4X/DAY
  6. DIAZEPAM [Concomitant]
     Dosage: LIQUID AND TABLETS

REACTIONS (4)
  - Glioblastoma multiforme [Unknown]
  - Status epilepticus [Unknown]
  - Partial seizures [Unknown]
  - Hypersensitivity [Unknown]
